FAERS Safety Report 5188787-4 (Version None)
Quarter: 2006Q4

REPORT INFORMATION
  Report Type: 
  Country: None (occurrence: None)
  Receive Date: 20061215
  Receipt Date: 20061204
  Transmission Date: 20070319
  Serious: Yes (Other)
  Sender: FDA-Public Use
  Company Number: 2006SP007762

PATIENT
  Sex: Female

DRUGS (2)
  1. NASONEX [Suspect]
     Indication: NASOPHARYNGITIS
     Dosage: 50 MCG; NAS
     Dates: start: 20061127
  2. AUGMENTIN '125' [Concomitant]

REACTIONS (2)
  - AGEUSIA [None]
  - ANOSMIA [None]
